FAERS Safety Report 6315633-5 (Version None)
Quarter: 2009Q3

REPORT INFORMATION
  Report Type: 
  Country: None (occurrence: None)
  Receive Date: 20090818
  Receipt Date: 20090803
  Transmission Date: 20100115
  Serious: Yes (Other)
  Sender: FDA-Public Use
  Company Number: 001521

PATIENT
  Age: 52 Year
  Sex: Female
  Weight: 54 kg

DRUGS (10)
  1. CO-CODAMOL (O-CODAMOL) [Suspect]
     Dosage: ()
  2. CLINDAMYCIN HCL [Suspect]
     Indication: POSTOPERATIVE CARE
     Dosage: (600 MG INTRAVENOUS (NOT OTHERSIDE SPECIFIED)
     Route: 042
     Dates: start: 20090707, end: 20090708
  3. ORAMORPH (ORAMORPH) (NOT SPECIFIED) [Suspect]
     Indication: PAIN
     Dosage: (20 MG QID ORAL)
     Route: 048
     Dates: start: 20090704, end: 20090708
  4. BISOPROLOL [Concomitant]
  5. CHLORPHENIRAMINE MALEATE [Concomitant]
  6. CITALOPRAM HYDROBROMIDE [Concomitant]
  7. DICLOFENAC [Concomitant]
  8. FERROUS FUMARATE [Concomitant]
  9. COLOXYL WITH SENNA [Concomitant]
  10. SIMVASTATIN [Concomitant]

REACTIONS (1)
  - STEVENS-JOHNSON SYNDROME [None]
